FAERS Safety Report 9306308 (Version 1)
Quarter: 2013Q2

REPORT INFORMATION
  Report Type: Spontaneous
  Country: US (occurrence: None)
  Receive Date: 20130516
  Receipt Date: 20130516
  Transmission Date: 20140414
  Serious: Yes (Hospitalization)
  Sender: FDA-Public Use
  Company Number: 003-108

PATIENT
  Age: 73 Year
  Sex: Female

DRUGS (2)
  1. CROFAB [Suspect]
     Indication: SNAKE BITE
     Dosage: ~18 VIALS TOTAL
  2. WARFARIN [Concomitant]

REACTIONS (2)
  - Thrombocytopenia [None]
  - International normalised ratio increased [None]
